FAERS Safety Report 21280296 (Version 1)
Quarter: 2022Q3

REPORT INFORMATION
  Report Type: Spontaneous
  Country: US (occurrence: US)
  Receive Date: 20220901
  Receipt Date: 20220901
  Transmission Date: 20221027
  Serious: No
  Sender: FDA-Public Use
  Company Number: US-009507513-2208USA002327

PATIENT
  Age: 21 Year
  Sex: Female

DRUGS (3)
  1. PEGINTRON [Suspect]
     Active Substance: PEGINTERFERON ALFA-2B
     Indication: Erdheim-Chester disease
     Dosage: UNK
  2. COBIMETINIB [Concomitant]
     Active Substance: COBIMETINIB
     Indication: Erdheim-Chester disease
     Dosage: UNK
  3. METHOTREXATE [Concomitant]
     Active Substance: METHOTREXATE
     Indication: Erdheim-Chester disease
     Dosage: UNK

REACTIONS (1)
  - Product use in unapproved indication [Unknown]
